FAERS Safety Report 6318212-9 (Version None)
Quarter: 2009Q3

REPORT INFORMATION
  Report Type: 
  Country: None (occurrence: None)
  Receive Date: 20090821
  Receipt Date: 20090814
  Transmission Date: 20100115
  Serious: Yes (Hospitalization)
  Sender: FDA-Public Use
  Company Number: B0589506A

PATIENT
  Sex: Female

DRUGS (2)
  1. LAMICTAL [Suspect]
     Dosage: 50MG TWICE PER DAY
     Route: 048
     Dates: start: 20040301
  2. VENLAFAXINE HCL [Concomitant]
     Dosage: 225MG PER DAY
     Route: 048
     Dates: end: 20041201

REACTIONS (2)
  - HAEMARTHROSIS [None]
  - JOINT SWELLING [None]
